FAERS Safety Report 4349224-2 (Version None)
Quarter: 2004Q2

REPORT INFORMATION
  Report Type: 
  Country: None (occurrence: None)
  Receive Date: 20040427
  Receipt Date: 20030411
  Transmission Date: 20050107
  Serious: Yes (Other)
  Sender: FDA-Public Use
  Company Number: 000521

PATIENT
  Age: 60 Year
  Sex: Female
  Weight: 75 kg

DRUGS (11)
  1. ZEVALIN [Suspect]
     Indication: NON-HODGKIN'S LYMPHOMA
     Dosage: 250 MG/M2, SINGLE, RITUXAN DOSE 1, INTRAVENOUS; 250 MG/M2, SINGLE, RITUXAN DOSE 2, INTRAVENOUS
     Route: 042
     Dates: start: 20030213, end: 20030213
  2. ZEVALIN [Suspect]
     Indication: NON-HODGKIN'S LYMPHOMA
     Dosage: 250 MG/M2, SINGLE, RITUXAN DOSE 1, INTRAVENOUS; 250 MG/M2, SINGLE, RITUXAN DOSE 2, INTRAVENOUS
     Route: 042
     Dates: start: 20030220, end: 20030220
  3. ZEVALIN [Suspect]
     Indication: NON-HODGKIN'S LYMPHOMA
     Dosage: 0.4 MCI/KG, Y-[90] ZEVALIN, INTRAVENOUS
     Route: 042
     Dates: start: 20030220, end: 20030220
  4. BUDESNONIDE (BUDESONIDE) [Concomitant]
  5. CLONAZEPAM [Concomitant]
  6. AMOXICILLIN TRIHYDRATE [Concomitant]
  7. ACETAMINOPHEN [Concomitant]
  8. DEXCHLORPHENIRAMINE (DEXCHLORPHENIRAMINE, DEXCHLORPHENIRAMINE) [Concomitant]
  9. METHYLPREDNISOLONE [Concomitant]
  10. CODEINE PHOSPHATE (CODEINE PHOSPHATE) [Concomitant]
  11. MACROGOL (MACROGOL) INJECTION [Concomitant]

REACTIONS (1)
  - PANCYTOPENIA [None]
